FAERS Safety Report 19786761 (Version 1)
Quarter: 2021Q3

REPORT INFORMATION
  Report Type: Spontaneous
  Country: DE (occurrence: DE)
  Receive Date: 20210903
  Receipt Date: 20210903
  Transmission Date: 20211014
  Serious: Yes (Disabling, Other)
  Sender: FDA-Public Use
  Company Number: DE-MYLANLABS-2021M1057578

PATIENT
  Age: 25 Year
  Sex: Male
  Weight: 80 kg

DRUGS (3)
  1. SERTRALINE [Suspect]
     Active Substance: SERTRALINE HYDROCHLORIDE
     Indication: DEPRESSION
     Dosage: MISSING EJACULATION
     Route: 048
     Dates: start: 20190828, end: 20200316
  2. RISPERIDONE. [Concomitant]
     Active Substance: RISPERIDONE
     Indication: PRODUCT USED FOR UNKNOWN INDICATION
     Dosage: VON 0,5 BIS  1,5 ODER 2MG. AM ENDE VON 1 MG AUF 0 ABGESETZT.
     Dates: start: 201908, end: 202001
  3. L?TRYPTOPHAN [Concomitant]
     Active Substance: TRYPTOPHAN
     Indication: DEPRESSED MOOD
     Dosage: UNK

REACTIONS (6)
  - Sexual dysfunction [Not Recovered/Not Resolved]
  - Erectile dysfunction [Not Recovered/Not Resolved]
  - Loss of libido [Not Recovered/Not Resolved]
  - Adverse reaction [Not Recovered/Not Resolved]
  - Genital hypoaesthesia [Not Recovered/Not Resolved]
  - Ejaculation failure [Recovered/Resolved]

NARRATIVE: CASE EVENT DATE: 20200316
